FAERS Safety Report 7338833-4 (Version None)
Quarter: 2011Q1

REPORT INFORMATION
  Report Type: 
  Country: None (occurrence: None)
  Receive Date: 20110303
  Receipt Date: 20110303
  Transmission Date: 20110831
  Serious: Yes (Life-Threatening)
  Sender: FDA-Public Use
  Company Number: None

PATIENT
  Sex: Male
  Weight: 99.7913 kg

DRUGS (1)
  1. ULORIC [Suspect]

REACTIONS (4)
  - LIP SWELLING [None]
  - RESPIRATORY TRACT OEDEMA [None]
  - EYE SWELLING [None]
  - OEDEMA PERIPHERAL [None]
